FAERS Safety Report 17598950 (Version 1)
Quarter: 2020Q1

REPORT INFORMATION
  Report Type: Spontaneous
  Country: CN (occurrence: CN)
  Receive Date: 20200330
  Receipt Date: 20200330
  Transmission Date: 20200409
  Serious: Yes (Other)
  Sender: FDA-Public Use
  Company Number: CN-PFIZER INC-2020129791

PATIENT
  Age: 87 Year
  Sex: Female
  Weight: 60 kg

DRUGS (3)
  1. SULPERAZON [Concomitant]
     Active Substance: CEFOPERAZONE SODIUM\SULBACTAM SODIUM
     Indication: LUNG ABSCESS
     Dosage: 3.000 G, 3X/DAY
     Route: 041
     Dates: start: 20200228, end: 20200312
  2. LINEZOLID. [Suspect]
     Active Substance: LINEZOLID
     Indication: STAPHYLOCOCCAL INFECTION
     Dosage: 0.600 G, 2X/DAY
     Route: 041
     Dates: start: 20200310, end: 20200313
  3. FLUCONAZOLE. [Concomitant]
     Active Substance: FLUCONAZOLE
     Indication: LUNG ABSCESS
     Dosage: 0.400 G, 1X/DAY
     Route: 041
     Dates: start: 20200308, end: 20200312

REACTIONS (4)
  - Mania [Recovered/Resolved]
  - Communication disorder [Recovered/Resolved]
  - Altered state of consciousness [Recovered/Resolved]
  - Delirium [Recovered/Resolved]

NARRATIVE: CASE EVENT DATE: 20200313
